FAERS Safety Report 7073116-1 (Version None)
Quarter: 2010Q4

REPORT INFORMATION
  Report Type: 
  Country: None (occurrence: None)
  Receive Date: 20101028
  Receipt Date: 20101028
  Transmission Date: 20110411
  Serious: Yes (Hospitalization)
  Sender: FDA-Public Use
  Company Number: None

PATIENT
  Age: 35 Year
  Sex: Female

DRUGS (1)
  1. LOVENOX [Suspect]
     Indication: THROMBOSIS PROPHYLAXIS
     Dosage: 30 MG Q12H SQ 1 DOSE
     Route: 058
     Dates: start: 20100910, end: 20100911

REACTIONS (1)
  - INFUSION SITE HAEMORRHAGE [None]
